FAERS Safety Report 4273687-4 (Version None)
Quarter: 2004Q1

REPORT INFORMATION
  Report Type: 
  Country: None (occurrence: None)
  Receive Date: 20040119
  Receipt Date: 20031118
  Transmission Date: 20041129
  Serious: Yes (Hospitalization)
  Sender: FDA-Public Use
  Company Number: JP-ROCHE-351864

PATIENT
  Age: 61 Year
  Sex: Male
  Weight: 66.5 kg

DRUGS (6)
  1. CAPECITABINE [Suspect]
     Dosage: INTERMITTENT THERAPY FOR 3 WEEKS TREATMENT FOLLOWED BY ONE WEEK'S REST.
     Route: 048
     Dates: start: 20030409, end: 20031105
  2. TRANILAST [Concomitant]
  3. BIFIDOBACTERIUM [Concomitant]
  4. ANTIFLATULENT NOS [Concomitant]
  5. TRIAZOLAM [Concomitant]
  6. DIHYDROCODEINE BITARTRATE INJ [Concomitant]

REACTIONS (2)
  - FACIAL PALSY [None]
  - KERATOCONJUNCTIVITIS SICCA [None]
